FAERS Safety Report 8097346-5 (Version None)
Quarter: 2012Q1

REPORT INFORMATION
  Report Type: 
  Country: None (occurrence: None)
  Receive Date: 20120128
  Receipt Date: 20110630
  Transmission Date: 20120608
  Serious: No
  Sender: FDA-Public Use
  Company Number: US-ABBOTT-11P-163-0835517-00

PATIENT
  Age: 30 Year
  Sex: Female

DRUGS (2)
  1. ASACOL [Concomitant]
     Indication: CROHN'S DISEASE
  2. HUMIRA [Suspect]
     Indication: CROHN'S DISEASE
     Dates: start: 20110301

REACTIONS (2)
  - INJECTION SITE URTICARIA [None]
  - INJECTION SITE PRURITUS [None]
